FAERS Safety Report 7451171-4 (Version None)
Quarter: 2011Q2

REPORT INFORMATION
  Report Type: 
  Country: None (occurrence: None)
  Receive Date: 20110502
  Receipt Date: 20110420
  Transmission Date: 20111010
  Serious: Yes (Other)
  Sender: FDA-Public Use
  Company Number: PHHY2011PE34448

PATIENT
  Sex: Female

DRUGS (1)
  1. EXFORGE [Suspect]
     Dosage: 160 MG VALS AND 10 MG AMLO
     Dates: start: 20100603

REACTIONS (2)
  - CARDIOVASCULAR INSUFFICIENCY [None]
  - FLUID RETENTION [None]
